FAERS Safety Report 6433425-3 (Version None)
Quarter: 2009Q4

REPORT INFORMATION
  Report Type: 
  Country: None (occurrence: None)
  Receive Date: 20091106
  Receipt Date: 20091106
  Transmission Date: 20100525
  Serious: Yes (Hospitalization)
  Sender: FDA-Public Use
  Company Number: None

PATIENT
  Sex: Male
  Weight: 92.0802 kg

DRUGS (10)
  1. ERLOTINIB 150 MG TABLETS OSI PHARMACEUTICAL [Suspect]
     Indication: OESOPHAGEAL CARCINOMA
     Dosage: 150 MG DAILY PO
     Route: 048
     Dates: start: 20090824, end: 20091103
  2. RADIATION THERAPY 180 CGY DAILY = TOTAL OF 5040 CGY ? [Suspect]
     Indication: OESOPHAGEAL CARCINOMA
     Dosage: 180 CGY DAILY M-F - 28 DAY OTHER
     Dates: start: 20090824, end: 20091001
  3. JANUVIA [Concomitant]
  4. BENAZEPRIL HYDROCHLORIDE [Concomitant]
  5. SIMAVASTATIN [Concomitant]
  6. PRILOSEC [Concomitant]
  7. MULTI-VITAMINS [Concomitant]
  8. TARCEVA [Concomitant]
  9. AQUAPHOR [Concomitant]
  10. DEXAMETHASONE [Concomitant]

REACTIONS (7)
  - EJECTION FRACTION DECREASED [None]
  - INTERSTITIAL LUNG DISEASE [None]
  - PLEURAL EFFUSION [None]
  - PNEUMONIA BACTERIAL [None]
  - PO2 DECREASED [None]
  - RADIATION PNEUMONITIS [None]
  - RESPIRATORY DISTRESS [None]
